FAERS Safety Report 9616080 (Version 1)
Quarter: 2013Q4

REPORT INFORMATION
  Report Type: Spontaneous
  Country: US (occurrence: None)
  Receive Date: 20131010
  Receipt Date: 20131010
  Transmission Date: 20140711
  Serious: Yes (Hospitalization)
  Sender: FDA-Public Use
  Company Number: None

PATIENT
  Age: 83 Year
  Sex: Male
  Weight: 77.3 kg

DRUGS (1)
  1. CLINDAMYCIN [Suspect]
     Indication: CELLULITIS
     Route: 048
     Dates: start: 20130829, end: 20130908

REACTIONS (4)
  - Rash [None]
  - Urticaria [None]
  - Pruritus [None]
  - Hypersensitivity vasculitis [None]
